FAERS Safety Report 4902404-7 (Version None)
Quarter: 2006Q1

REPORT INFORMATION
  Report Type: 
  Country: None (occurrence: None)
  Receive Date: 20060201
  Receipt Date: 20060201
  Transmission Date: 20060701
  Serious: Yes (Hospitalization, Other)
  Sender: FDA-Public Use
  Company Number: None

PATIENT
  Sex: Female
  Weight: 60.2 kg

DRUGS (1)
  1. DOXIL [Suspect]
     Indication: DIFFUSE LARGE B-CELL LYMPHOMA
     Dosage: 57 MG
     Route: 042
     Dates: start: 20051215, end: 20051215

REACTIONS (4)
  - BACTERIAL INFECTION [None]
  - BLOOD CULTURE POSITIVE [None]
  - NEUTROPHIL COUNT DECREASED [None]
  - VAGINAL INFECTION [None]
